FAERS Safety Report 4583678-1 (Version None)
Quarter: 2005Q1

REPORT INFORMATION
  Report Type: 
  Country: None (occurrence: None)
  Receive Date: 20050211
  Receipt Date: 20050203
  Transmission Date: 20050727
  Serious: Yes (Death)
  Sender: FDA-Public Use
  Company Number: J081-002-001836

PATIENT
  Age: 79 Year
  Sex: Female

DRUGS (12)
  1. ARICEPT [Suspect]
     Indication: DEMENTIA
     Dosage: SEE IMAGE
     Route: 048
     Dates: start: 20040614, end: 20040620
  2. ARICEPT [Suspect]
     Indication: DEMENTIA ALZHEIMER'S TYPE
     Dosage: SEE IMAGE
     Route: 048
     Dates: start: 20040614, end: 20040620
  3. ARICEPT [Suspect]
     Indication: DEMENTIA
     Dosage: SEE IMAGE
     Route: 048
     Dates: start: 20040621, end: 20040712
  4. ARICEPT [Suspect]
     Indication: DEMENTIA ALZHEIMER'S TYPE
     Dosage: SEE IMAGE
     Route: 048
     Dates: start: 20040621, end: 20040712
  5. ARICEPT [Suspect]
     Indication: DEMENTIA
     Dosage: SEE IMAGE
     Route: 048
     Dates: start: 20040816, end: 20040822
  6. ARICEPT [Suspect]
     Indication: DEMENTIA ALZHEIMER'S TYPE
     Dosage: SEE IMAGE
     Route: 048
     Dates: start: 20040816, end: 20040822
  7. ARICEPT [Suspect]
     Indication: DEMENTIA
     Dosage: SEE IMAGE
     Route: 048
     Dates: start: 20040823, end: 20041101
  8. ARICEPT [Suspect]
     Indication: DEMENTIA ALZHEIMER'S TYPE
     Dosage: SEE IMAGE
     Route: 048
     Dates: start: 20040823, end: 20041101
  9. SERMION (NICERGOLINE) [Suspect]
     Indication: LACUNAR INFARCTION
     Dosage: 10 MG, 2 IN 1 D, ORAL
     Route: 048
     Dates: start: 20040901
  10. LASIX [Suspect]
     Indication: CARDIAC FAILURE
     Dosage: 20 MG, 1 IN 1 D, ORAL
     Route: 048
     Dates: start: 20040712
  11. ALDACTONE [Suspect]
     Indication: CARDIAC FAILURE
     Dosage: 25 MG, 1 IN 1 D, ORAL
     Route: 048
     Dates: start: 20040712
  12. NITODERM TTS (GLYCERYL TRINITRATE) [Suspect]
     Indication: CARDIAC FAILURE
     Dosage: 1 DFX1, OD
     Dates: start: 20040712

REACTIONS (13)
  - AORTIC VALVE STENOSIS [None]
  - BRADYCARDIA [None]
  - CARDIAC FAILURE [None]
  - CEREBRAL ISCHAEMIA [None]
  - DECREASED ACTIVITY [None]
  - DEMENTIA [None]
  - DEMENTIA ALZHEIMER'S TYPE [None]
  - GAIT DISTURBANCE [None]
  - GENERAL PHYSICAL HEALTH DETERIORATION [None]
  - MITRAL VALVE INCOMPETENCE [None]
  - OEDEMA PERIPHERAL [None]
  - PLEURAL EFFUSION [None]
  - VENTRICULAR EXTRASYSTOLES [None]
